FAERS Safety Report 13346025 (Version 2)
Quarter: 2017Q2

REPORT INFORMATION
  Report Type: Spontaneous
  Country: BR (occurrence: BR)
  Receive Date: 20170317
  Receipt Date: 20170505
  Transmission Date: 20170830
  Serious: Yes (Other)
  Sender: FDA-Public Use
  Company Number: BR-AMGEN-BRASP2014060512

PATIENT
  Age: 44 Year
  Sex: Female
  Weight: 81 kg

DRUGS (18)
  1. ENBREL [Suspect]
     Active Substance: ETANERCEPT
     Indication: RHEUMATOID ARTHRITIS
     Dosage: UNK
     Route: 065
  2. PREDNISONE. [Concomitant]
     Active Substance: PREDNISONE
     Dosage: ONE TABLET (STRENGTH 5 MG), DAILY
     Dates: start: 201311
  3. FOLIC ACID. [Concomitant]
     Active Substance: FOLIC ACID
     Indication: SICKLE CELL ANAEMIA
     Dosage: STRENGTH 5MG, AT TWO TABLETS (10MG) WEEKLY
     Dates: start: 1989
  4. ENBREL [Suspect]
     Active Substance: ETANERCEPT
     Dosage: 50 MG, ONCE WEEKLY
     Route: 058
     Dates: start: 20140101
  5. HYDROXYUREA. [Concomitant]
     Active Substance: HYDROXYUREA
     Indication: SICKLE CELL ANAEMIA
     Dosage: STRENGTH 500 MG, AT TWO TABLETS (1000 MG) PER DAY
     Dates: start: 2012
  6. VITAMIN D [Concomitant]
     Active Substance: CHOLECALCIFEROL
     Dosage: STRENGTH 20 MG, AT 10 DROPS PER DAY
     Dates: start: 201311
  7. LEFLUNOMIDE. [Concomitant]
     Active Substance: LEFLUNOMIDE
     Dosage: 1 TABLET A DAY
  8. ENBREL [Suspect]
     Active Substance: ETANERCEPT
     Dosage: UNK
     Route: 065
  9. FLUOXETINE [Concomitant]
     Active Substance: FLUOXETINE HYDROCHLORIDE
     Dosage: STRENGTH 20 MG, AT ONE TABLET (1 MG) PER DAY
     Dates: start: 201407
  10. ALPRAZOLAM. [Concomitant]
     Active Substance: ALPRAZOLAM
     Dosage: UNK
  11. CALCIUM/VITAMIN D [Concomitant]
     Active Substance: CALCIUM\VITAMIN D
     Dosage: STRENGTH 400MG, AT TWO TABLETS (800MG) PER DAY
     Dates: start: 201311
  12. ORAP [Concomitant]
     Active Substance: PIMOZIDE
     Dosage: STRENGTH 1MG, AT ONE TABLET (1MG) PER DAY
     Dates: start: 201407
  13. AMATO [Concomitant]
     Active Substance: TOPIRAMATE
     Dosage: UNK
  14. ALENDRONATE [Concomitant]
     Active Substance: ALENDRONATE SODIUM
     Indication: RHEUMATOID ARTHRITIS
     Dosage: ONE TABLET (STRENGTH 70 MG), PER WEEK
     Dates: start: 201311
  15. ALENDRONATE SODIUM. [Concomitant]
     Active Substance: ALENDRONATE SODIUM
     Indication: RHEUMATOID ARTHRITIS
     Dosage: ONE TABLET (STRENGTH 70 MG), PER WEEK
     Dates: start: 201311
  16. METHOTREXATE. [Concomitant]
     Active Substance: METHOTREXATE
     Dosage: STRENGTH 2.5MG, AT TWO TABLETS (5MG) WEEKLY
     Dates: start: 201311
  17. ARAVA [Concomitant]
     Active Substance: LEFLUNOMIDE
     Dosage: ONE TABLET (STRENGTH 20 MG) PER DAY
     Dates: start: 201311
  18. CELEBRA [Concomitant]
     Active Substance: CELECOXIB
     Dosage: STRENGTH 200 MG, AT TWO TABLETS (400 MG) PER DAY
     Dates: start: 20140729

REACTIONS (9)
  - Injection site pain [Unknown]
  - Condition aggravated [Unknown]
  - Product quality issue [Unknown]
  - Rheumatoid arthritis [Unknown]
  - Pain [Unknown]
  - Burning sensation [Unknown]
  - Drug ineffective [Unknown]
  - Viral upper respiratory tract infection [Not Recovered/Not Resolved]
  - Injection site laceration [Unknown]

NARRATIVE: CASE EVENT DATE: 2014
